FAERS Safety Report 13192115 (Version 2)
Quarter: 2020Q3

REPORT INFORMATION
  Report Type: Report from Study
  Country: FR (occurrence: FR)
  Receive Date: 20170207
  Receipt Date: 20170321
  Transmission Date: 20201104
  Serious: Yes (Hospitalization)
  Sender: FDA-Public Use
  Company Number: FR-ROCHE-1855960

PATIENT
  Age: 66 Year
  Sex: Female
  Weight: 67.3 kg

DRUGS (21)
  1. STILNOX [Concomitant]
     Active Substance: ZOLPIDEM TARTRATE
     Indication: INSOMNIA
     Route: 048
     Dates: start: 20160317
  2. TRAMADOL. [Concomitant]
     Active Substance: TRAMADOL
     Indication: SCIATICA
     Route: 048
     Dates: start: 20161129, end: 20161206
  3. ZOVIRAX [Concomitant]
     Active Substance: ACYCLOVIR
     Indication: INFECTION
     Route: 048
     Dates: start: 20160329
  4. MOTILIUM [Concomitant]
     Active Substance: DOMPERIDONE
     Indication: NAUSEA
     Route: 048
     Dates: start: 20161122, end: 20161206
  5. PREDNISONE. [Suspect]
     Active Substance: PREDNISONE
     Indication: B-CELL LYMPHOMA
     Dosage: THE MOST RECENT DOSE PRIOR TO THE EVENT ONSET 22/AUG/2016 (100 MG).
     Route: 048
     Dates: start: 20160319
  6. BACTRIM [Concomitant]
     Active Substance: SULFAMETHOXAZOLE\TRIMETHOPRIM
     Indication: INFECTION
     Route: 048
     Dates: start: 20160323
  7. LEDERFOLINE [Concomitant]
     Active Substance: LEUCOVORIN CALCIUM
     Indication: INFECTION
     Route: 048
     Dates: start: 20160323
  8. PRIMPERAN [Concomitant]
     Active Substance: METOCLOPRAMIDE HYDROCHLORIDE
     Indication: NAUSEA
     Route: 048
     Dates: start: 20160616
  9. TRAMADOL LP [Concomitant]
     Active Substance: TRAMADOL HYDROCHLORIDE
     Route: 048
     Dates: start: 20161122, end: 20161122
  10. NORSET [Concomitant]
     Active Substance: MIRTAZAPINE
     Indication: DEPRESSION
     Route: 048
     Dates: start: 20161129, end: 20161206
  11. TRAMADOL LP [Concomitant]
     Active Substance: TRAMADOL HYDROCHLORIDE
     Indication: SCIATICA
     Route: 048
     Dates: start: 20161119, end: 20161119
  12. DOXORUBICIN [Suspect]
     Active Substance: DOXORUBICIN
     Indication: B-CELL LYMPHOMA
     Dosage: THE MOST RECENT DOSE PRIOR TO THE EVENT ONSET: 18/AUG/2016 (90 MG)
     Route: 042
     Dates: start: 20160322
  13. CYCLOPHOSPHAMIDE. [Suspect]
     Active Substance: CYCLOPHOSPHAMIDE
     Indication: B-CELL LYMPHOMA
     Dosage: THE MOST RECENT DOSE PRIOR TO THE EVENT ONSET 18/AUG/2016 (1350 MG).
     Route: 042
     Dates: start: 20160322
  14. PRIMPERAN [Concomitant]
     Active Substance: METOCLOPRAMIDE HYDROCHLORIDE
     Indication: VOMITING
  15. OXAZEPAM. [Concomitant]
     Active Substance: OXAZEPAM
     Indication: DEPRESSION
     Route: 048
     Dates: start: 20161118
  16. IMOVANE [Concomitant]
     Active Substance: ZOPICLONE
     Indication: DEPRESSION
     Route: 048
     Dates: start: 20170227
  17. CYMBALTA [Concomitant]
     Active Substance: DULOXETINE HYDROCHLORIDE
     Indication: DEPRESSION
     Route: 048
     Dates: start: 20170227, end: 20170302
  18. RITUXIMAB. [Suspect]
     Active Substance: RITUXIMAB
     Indication: B-CELL LYMPHOMA
     Dosage: THE MOST RECENT DOSE PRIOR TO THE EVENT ONSET: 18/AUG/2016 (680 MG).
     Route: 042
     Dates: start: 20160322
  19. MOPRAL [Concomitant]
     Active Substance: OMEPRAZOLE
     Indication: GASTRIC ULCER
     Route: 048
     Dates: start: 20160319
  20. POLATUZUMAB VEDOTIN. [Suspect]
     Active Substance: POLATUZUMAB VEDOTIN
     Indication: B-CELL LYMPHOMA
     Dosage: THE MOST RECENT DOSE (126 MG) PRIOR TO THE EVENT ONSET: 28/JUL/2016
     Route: 042
     Dates: start: 20160323
  21. ACUPAN [Concomitant]
     Active Substance: NEFOPAM HYDROCHLORIDE
     Indication: SCIATICA
     Route: 048
     Dates: start: 20161122, end: 20161206

REACTIONS (1)
  - Atrial fibrillation [Recovered/Resolved]

NARRATIVE: CASE EVENT DATE: 20161114
